FAERS Safety Report 11876191 (Version 6)
Quarter: 2016Q4

REPORT INFORMATION
  Report Type: Report from Study
  Country: JP (occurrence: JP)
  Receive Date: 20151229
  Receipt Date: 20161220
  Transmission Date: 20170206
  Serious: Yes (Hospitalization, Other)
  Sender: FDA-Public Use
  Company Number: JP-VIIV HEALTHCARE LIMITED-A200601566

PATIENT
  Age: 26 Year
  Sex: Male

DRUGS (31)
  1. KALETRA [Suspect]
     Active Substance: LOPINAVIR\RITONAVIR
     Indication: HIV INFECTION
     Dosage: 6 DF, UNK
     Route: 048
     Dates: start: 20010524, end: 20061127
  2. CROSS EIGHT M [Concomitant]
     Active Substance: ANTIHEMOPHILIC FACTOR HUMAN
     Indication: HAEMORRHAGE PROPHYLAXIS
     Dosage: 1000 IU, UNK
     Route: 042
     Dates: start: 20150401, end: 20150608
  3. NORVIR [Suspect]
     Active Substance: RITONAVIR
     Dosage: 300 MG, BID
     Route: 048
     Dates: start: 19980404, end: 19980405
  4. MILTAX [Concomitant]
     Active Substance: VIDARABINE
     Indication: FACTOR VIII DEFICIENCY
     Dosage: ARBITRARILY
     Route: 062
     Dates: start: 20050815
  5. HARVONI [Concomitant]
     Active Substance: LEDIPASVIR\SOFOSBUVIR
     Indication: CHRONIC HEPATITIS C
     Dosage: 1 DF, QD
     Dates: start: 20151110, end: 20160201
  6. NORVIR [Suspect]
     Active Substance: RITONAVIR
     Dosage: 400 MG, BID
     Route: 048
     Dates: start: 19980406, end: 19990820
  7. KALETRA [Suspect]
     Active Substance: LOPINAVIR\RITONAVIR
     Dosage: 4 DF, UNK
     Route: 048
     Dates: start: 20061128, end: 20090126
  8. CROSS EIGHT M [Concomitant]
     Active Substance: ANTIHEMOPHILIC FACTOR HUMAN
     Indication: HAEMOPHILIA
     Dosage: 1000 IU, 1-2 TIMES/WEEK
     Dates: start: 20050815
  9. ABACAVIR SULFATE + LAMIVUDINE [Suspect]
     Active Substance: ABACAVIR SULFATE\LAMIVUDINE
     Indication: HIV INFECTION
     Dosage: 1 DF, UNK
     Route: 048
     Dates: start: 20050428, end: 20090126
  10. TRUVADA [Concomitant]
     Active Substance: EMTRICITABINE\TENOFOVIR DISOPROXIL FUMARATE
     Indication: ACQUIRED IMMUNODEFICIENCY SYNDROME
     Dosage: 1 DF, UNK
     Route: 048
     Dates: start: 20090127
  11. NORVIR [Concomitant]
     Active Substance: RITONAVIR
     Indication: HIV INFECTION
     Dosage: 100 MG, UNK
     Dates: start: 20090519, end: 20110711
  12. PREZISTA [Concomitant]
     Active Substance: DARUNAVIR ETHANOLATE
     Indication: HIV INFECTION
     Dosage: 900 MG, UNK
     Dates: start: 20090519, end: 20110425
  13. REFLEX TABLETS [Concomitant]
     Indication: ADJUSTMENT DISORDER
  14. ABACAVIR SULPHATE [Suspect]
     Active Substance: ABACAVIR
     Indication: HIV INFECTION
     Dosage: 300 MG, BID
     Route: 048
     Dates: start: 20010524, end: 20050427
  15. NORVIR [Suspect]
     Active Substance: RITONAVIR
     Dosage: 200 MG, BID
     Route: 048
     Dates: start: 19980402, end: 19980403
  16. CROSS EIGHT M [Concomitant]
     Active Substance: ANTIHEMOPHILIC FACTOR HUMAN
     Indication: FACTOR VIII DEFICIENCY
     Dosage: 4000 IU, QD
     Route: 042
     Dates: start: 20150609, end: 20150803
  17. TRUVADA [Concomitant]
     Active Substance: EMTRICITABINE\TENOFOVIR DISOPROXIL FUMARATE
     Indication: HIV INFECTION
  18. LOXONIN [Concomitant]
     Active Substance: LOXOPROFEN SODIUM
     Indication: HEADACHE
     Dosage: 60 MG, QD
     Dates: start: 20150401, end: 20150406
  19. LAMIVUDINE AND ZIDOVUDINE [Suspect]
     Active Substance: LAMIVUDINE\ZIDOVUDINE
     Indication: HIV INFECTION
     Dosage: 2 DF, UNK
     Route: 048
     Dates: start: 20010524, end: 20050427
  20. NORVIR [Suspect]
     Active Substance: RITONAVIR
     Indication: HIV INFECTION
     Dosage: 100 MG, BID
     Route: 048
     Dates: start: 19980330, end: 19980401
  21. PREZISTANAIVE [Concomitant]
     Active Substance: DARUNAVIR
     Indication: HIV INFECTION
     Dosage: 800 MG, QD
     Dates: start: 20110426, end: 20140908
  22. CYMBALTA [Concomitant]
     Active Substance: DULOXETINE HYDROCHLORIDE
     Indication: SENSORY DISTURBANCE
     Dosage: 20 MG, QD
     Dates: start: 20160315
  23. NORVIR [Suspect]
     Active Substance: RITONAVIR
     Dosage: 100 MG, UNK
     Route: 048
     Dates: start: 20110712, end: 20140908
  24. ZERIT [Suspect]
     Active Substance: STAVUDINE
     Indication: HIV INFECTION
     Dosage: 30 MG, BID
     Dates: start: 19980327, end: 19980820
  25. CROSS EIGHT M [Concomitant]
     Active Substance: ANTIHEMOPHILIC FACTOR HUMAN
     Dosage: 1000 IU, 10/MONTH
     Route: 042
     Dates: start: 20150804
  26. ISENTRESS [Concomitant]
     Active Substance: RALTEGRAVIR POTASSIUM
     Indication: ACQUIRED IMMUNODEFICIENCY SYNDROME
     Dosage: 800 MG, UNK
     Route: 048
     Dates: start: 20090127, end: 20090518
  27. REFLEX TABLETS [Concomitant]
     Indication: DEPRESSION
     Dosage: 15 MG, QD
     Dates: start: 20150401
  28. TIVICAY [Suspect]
     Active Substance: DOLUTEGRAVIR SODIUM
     Indication: HIV INFECTION
     Dosage: 50 MG, UNK
     Route: 048
     Dates: start: 20140909
  29. NORVIR [Suspect]
     Active Substance: RITONAVIR
     Dosage: 400 MG, BID
     Route: 048
     Dates: start: 19990830, end: 19990914
  30. ZERIT [Suspect]
     Active Substance: STAVUDINE
     Dosage: 30 MG, BID
     Dates: start: 19990830, end: 20000131
  31. URSO [Concomitant]
     Active Substance: URSODIOL
     Indication: HEPATIC FUNCTION ABNORMAL
     Dosage: 200 MG, TID
     Dates: start: 20150401, end: 20151209

REACTIONS (4)
  - Lipodystrophy acquired [Recovered/Resolved]
  - Haemorrhagic diathesis [Recovering/Resolving]
  - Liver function test abnormal [Recovering/Resolving]
  - Vascular insufficiency [Recovering/Resolving]

NARRATIVE: CASE EVENT DATE: 19990105
